FAERS Safety Report 23330823 (Version 3)
Quarter: 2024Q2

REPORT INFORMATION
  Report Type: Spontaneous
  Country: US (occurrence: US)
  Receive Date: 20231222
  Receipt Date: 20240605
  Transmission Date: 20240716
  Serious: No
  Sender: FDA-Public Use
  Company Number: US-SA-SAC20231220001354

PATIENT
  Sex: Female
  Weight: 99.79 kg

DRUGS (1)
  1. DUPIXENT [Suspect]
     Active Substance: DUPILUMAB
     Indication: Eosinophilic oesophagitis
     Dosage: 300 MG, QW
     Route: 058

REACTIONS (6)
  - Nausea [Unknown]
  - Flatulence [Unknown]
  - Malaise [Unknown]
  - Discomfort [Unknown]
  - Product dose omission issue [Unknown]
  - Eosinophilic oesophagitis [Unknown]
